FAERS Safety Report 24610774 (Version 2)
Quarter: 2024Q4

REPORT INFORMATION
  Report Type: Report from Study
  Country: US (occurrence: US)
  Receive Date: 20241112
  Receipt Date: 20241202
  Transmission Date: 20250114
  Serious: Yes (Hospitalization, Disabling, Other)
  Sender: ABBVIE
  Company Number: US-ABBVIE-5996267

PATIENT
  Age: 67 Year
  Sex: Female
  Weight: 100.24 kg

DRUGS (3)
  1. SKYRIZI [Suspect]
     Active Substance: RISANKIZUMAB-RZAA
     Indication: Psoriasis
     Dosage: UNKNOWN
     Route: 058
     Dates: start: 202205
  2. OZEMPIC [Concomitant]
     Active Substance: SEMAGLUTIDE
     Indication: Diabetes mellitus
  3. LISINOPRIL [Concomitant]
     Active Substance: LISINOPRIL
     Indication: Hypertension

REACTIONS (9)
  - Wound abscess [Recovered/Resolved]
  - Lung carcinoma cell type unspecified stage III [Not Recovered/Not Resolved]
  - Pain [Not Recovered/Not Resolved]
  - Immunodeficiency [Unknown]
  - Cough [Unknown]
  - Dyspnoea [Unknown]
  - Gait inability [Recovered/Resolved]
  - Aphasia [Recovered/Resolved]
  - General symptom [Unknown]

NARRATIVE: CASE EVENT DATE: 20240701
